FAERS Safety Report 15101758 (Version 1)
Quarter: 2018Q3

REPORT INFORMATION
  Report Type: Spontaneous
  Country: US (occurrence: US)
  Receive Date: 20180703
  Receipt Date: 20180703
  Transmission Date: 20181010
  Serious: No
  Sender: FDA-Public Use
  Company Number: US-AVEDRO-AVE-2018-0112-AE

PATIENT
  Age: 47 Year
  Sex: Female

DRUGS (2)
  1. PHOTREXA VISCOUS [Suspect]
     Active Substance: RIBOFLAVIN 5^-PHOSPHATE SODIUM
     Indication: KERATOCONUS
     Route: 047
     Dates: start: 20180515, end: 20180515
  2. KXL SYSTEM [Suspect]
     Active Substance: DEVICE
     Indication: KERATOCONUS
     Route: 047
     Dates: start: 20180515, end: 20180515

REACTIONS (2)
  - Therapy cessation [Unknown]
  - No adverse event [Unknown]

NARRATIVE: CASE EVENT DATE: 20180515
